FAERS Safety Report 20345923 (Version 2)
Quarter: 2022Q1

REPORT INFORMATION
  Report Type: Spontaneous
  Country: JP (occurrence: JP)
  Receive Date: 20220118
  Receipt Date: 20220314
  Transmission Date: 20220424
  Serious: Yes (Life-Threatening)
  Sender: FDA-Public Use
  Company Number: JP-PFIZER INC-202200022705

PATIENT
  Age: 55 Year
  Sex: Female
  Weight: 77 kg

DRUGS (3)
  1. PACLITAXEL [Suspect]
     Active Substance: PACLITAXEL
     Dosage: 300 MG/BODY
     Dates: start: 20220106
  2. FAMOTIDINE [Concomitant]
     Active Substance: FAMOTIDINE
     Dosage: 20 MG/20 ML, 1A
     Dates: start: 20220106
  3. ORGADRONE [DEXAMETHASONE SODIUM PHOSPHATE] [Concomitant]
     Dosage: 3.8 MG, 2 TUBE
     Dates: start: 20220106

REACTIONS (1)
  - Anaphylactic shock [Recovered/Resolved]

NARRATIVE: CASE EVENT DATE: 20220106
